FAERS Safety Report 7350831-3 (Version None)
Quarter: 2011Q1

REPORT INFORMATION
  Report Type: 
  Country: None (occurrence: None)
  Receive Date: 20110314
  Receipt Date: 20110303
  Transmission Date: 20110831
  Serious: Yes (Hospitalization, Other)
  Sender: FDA-Public Use
  Company Number: CA-JNJFOC-20110102222

PATIENT
  Sex: Female
  Weight: 56 kg

DRUGS (2)
  1. REMICADE [Suspect]
     Route: 042
  2. REMICADE [Suspect]
     Indication: ILL-DEFINED DISORDER
     Route: 042

REACTIONS (7)
  - SYNCOPE [None]
  - ASTHENIA [None]
  - BLOOD MAGNESIUM DECREASED [None]
  - NAUSEA [None]
  - BLOOD POTASSIUM INCREASED [None]
  - WEIGHT DECREASED [None]
  - VOMITING [None]
